FAERS Safety Report 13920364 (Version 2)
Quarter: 2017Q4

REPORT INFORMATION
  Report Type: Spontaneous
  Country: IE (occurrence: IE)
  Receive Date: 20170830
  Receipt Date: 20171009
  Transmission Date: 20180320
  Serious: Yes (Hospitalization, Other)
  Sender: FDA-Public Use
  Company Number: IE-ABBVIE-17K-229-2084804-00

PATIENT
  Sex: Male

DRUGS (2)
  1. HUMIRA [Suspect]
     Active Substance: ADALIMUMAB
     Indication: PSORIATIC ARTHROPATHY
     Route: 058
     Dates: start: 2007
  2. HUMIRA [Suspect]
     Active Substance: ADALIMUMAB
     Route: 058

REACTIONS (11)
  - Cystitis noninfective [Unknown]
  - Precancerous cells present [Unknown]
  - Transient ischaemic attack [Recovered/Resolved]
  - Leukopenia [Unknown]
  - Haematuria [Unknown]
  - Cystitis [Unknown]
  - Metaplasia [Unknown]
  - Prostate cancer [Unknown]
  - Hernia [Unknown]
  - Dysuria [Unknown]
  - Meningitis [Unknown]

NARRATIVE: CASE EVENT DATE: 201502
